FAERS Safety Report 5338262-9 (Version None)
Quarter: 2007Q2

REPORT INFORMATION
  Report Type: 
  Country: None (occurrence: None)
  Receive Date: 20070327
  Receipt Date: 20070206
  Transmission Date: 20071010
  Serious: No
  Sender: FDA-Public Use
  Company Number: 236190

PATIENT
  Age: 84 Year
  Sex: Male

DRUGS (2)
  1. AVASTIN [Suspect]
     Indication: MACULAR DEGENERATION
     Dosage: SINGLE, INTRAVITREAL
     Dates: start: 20070105
  2. HERBAL MEDICINE (HERBAL, HOMEOPATHIC, + DIETARY SUPPLEMENTS) [Concomitant]

REACTIONS (1)
  - MACULAR DEGENERATION [None]
